FAERS Safety Report 5307501-2 (Version None)
Quarter: 2007Q2

REPORT INFORMATION
  Report Type: 
  Country: None (occurrence: None)
  Receive Date: 20070425
  Receipt Date: 20070413
  Transmission Date: 20071010
  Serious: No
  Sender: FDA-Public Use
  Company Number: DE-ELI_LILLY_AND_COMPANY-DE200704004062

PATIENT
  Age: 53 Year
  Sex: Male
  Weight: 70 kg

DRUGS (5)
  1. CYMBALTA [Suspect]
     Indication: DEPRESSION
     Dosage: 60 MG, DAILY (1/D)
     Route: 048
     Dates: start: 20070202, end: 20070311
  2. MARCUMAR [Concomitant]
     Route: 048
  3. SIMVASTATIN [Concomitant]
     Dosage: 40 MG, DAILY (1/D)
     Route: 048
  4. ACTONEL [Concomitant]
     Dosage: UNK, WEEKLY (1/W)
  5. IDEOS [Concomitant]

REACTIONS (6)
  - COAGULOPATHY [None]
  - DIARRHOEA [None]
  - HAEMATOMA [None]
  - MUCOSAL HAEMORRHAGE [None]
  - MUSCLE TWITCHING [None]
  - PROTHROMBIN TIME PROLONGED [None]
